FAERS Safety Report 15320156 (Version 1)
Quarter: 2018Q3

REPORT INFORMATION
  Report Type: Spontaneous
  Country: US (occurrence: US)
  Receive Date: 20180820
  Receipt Date: 20180820
  Transmission Date: 20181010
  Serious: Yes (Life-Threatening, Hospitalization, Disabling, Other)
  Sender: FDA-Public Use
  Company Number: None

PATIENT
  Age: 68 Year
  Sex: Male
  Weight: 82.35 kg

DRUGS (9)
  1. VALSARTAN 160MG, AND 80MG [Suspect]
     Active Substance: VALSARTAN
     Indication: HYPERTENSION
     Dosage: ?          QUANTITY:1 TABLET(S);?
     Route: 048
  2. CARVEDILOL. [Concomitant]
     Active Substance: CARVEDILOL
  3. FERROUS SULFATE. [Concomitant]
     Active Substance: FERROUS SULFATE
  4. ROSUVASTATIN. [Concomitant]
     Active Substance: ROSUVASTATIN
  5. AMYLODIPINE [Concomitant]
  6. CENTRUM MULTI VITAMIN [Concomitant]
  7. ASA [Concomitant]
     Active Substance: ASPIRIN
  8. VALSARTAN. [Suspect]
     Active Substance: VALSARTAN
     Indication: HYPERTENSION
     Dosage: ?          QUANTITY:1 TABLET(S);?
     Route: 048
  9. PANTOPRAZOL [Concomitant]
     Active Substance: PANTOPRAZOLE SODIUM

REACTIONS (5)
  - Laryngeal squamous cell carcinoma [None]
  - Product quality issue [None]
  - Dysphonia [None]
  - Prostate cancer [None]
  - Carcinogenicity [None]

NARRATIVE: CASE EVENT DATE: 20180110
